FAERS Safety Report 8402763-7 (Version None)
Quarter: 2012Q2

REPORT INFORMATION
  Report Type: 
  Country: None (occurrence: None)
  Receive Date: 20120601
  Receipt Date: 20120501
  Transmission Date: 20120825
  Serious: Yes (Other)
  Sender: FDA-Public Use
  Company Number: US-ROCHE-1072412

PATIENT
  Sex: Male

DRUGS (3)
  1. VICTRELIS [Suspect]
     Indication: HEPATITIS C
     Dosage: 4DF
     Route: 048
     Dates: start: 20120213
  2. PEGASYS [Suspect]
     Indication: HEPATITIS C
     Route: 058
  3. RIBAVIRIN [Suspect]
     Indication: HEPATITIS C
     Dosage: 2 DF Q AM, 3 DF Q PM
     Dates: start: 20120113

REACTIONS (7)
  - BLOOD PRESSURE INCREASED [None]
  - MALAISE [None]
  - DIZZINESS [None]
  - RENAL PAIN [None]
  - ANAEMIA [None]
  - CHEST DISCOMFORT [None]
  - ASTHENIA [None]
